FAERS Safety Report 25503994 (Version 4)
Quarter: 2025Q4

REPORT INFORMATION
  Report Type: Spontaneous
  Country: US (occurrence: US)
  Receive Date: 20250702
  Receipt Date: 20251125
  Transmission Date: 20260117
  Serious: Yes (Other)
  Sender: BRISTOL-MYERS SQUIBB COMPANY
  Company Number: US-BRISTOL-MYERS SQUIBB COMPANY-2025-093548

PATIENT
  Age: 78 Year
  Sex: Male

DRUGS (2)
  1. POMALYST [Suspect]
     Active Substance: POMALIDOMIDE
     Indication: Plasma cell myeloma
     Route: 048
  2. POMALYST [Suspect]
     Active Substance: POMALIDOMIDE
     Dosage: FREQUENCY: CYCLIC
     Route: 048

REACTIONS (6)
  - Fatigue [Unknown]
  - Gastrointestinal disorder [Unknown]
  - Decreased appetite [Unknown]
  - Constipation [Unknown]
  - Sluggishness [Unknown]
  - Pneumonia [Recovering/Resolving]
